FAERS Safety Report 13370113 (Version 2)
Quarter: 2018Q1

REPORT INFORMATION
  Report Type: Spontaneous
  Country: AT (occurrence: AT)
  Receive Date: 20170324
  Receipt Date: 20180327
  Transmission Date: 20180508
  Serious: Yes (Hospitalization, Other)
  Sender: FDA-Public Use
  Company Number: AT-MYLANLABS-2017M1017570

PATIENT
  Age: 61 Year
  Sex: Female

DRUGS (3)
  1. PICOLAX /06440801/ [Suspect]
     Active Substance: MAGNESIUM CITRATE\SODIUM PICOSULFATE
     Indication: BOWEL PREPARATION
     Dosage: RECEIVED 4 HOURS BEFORE PRESENTATION
     Route: 065
  2. DICLOFENAC [Suspect]
     Active Substance: DICLOFENAC
     Indication: MUSCULOSKELETAL PAIN
     Dosage: 50 MG, BID
     Route: 065
  3. LEVOTHYROXINE SODIUM. [Concomitant]
     Active Substance: LEVOTHYROXINE SODIUM
     Indication: HYPOTHYROIDISM
     Route: 065

REACTIONS (7)
  - Blood chloride decreased [None]
  - Blood thyroid stimulating hormone decreased [None]
  - Hyponatraemic encephalopathy [Recovered/Resolved]
  - Water intoxication [Recovered/Resolved]
  - Blood osmolarity decreased [None]
  - Hypophagia [None]
  - Blood potassium decreased [None]
